FAERS Safety Report 5832048-4 (Version None)
Quarter: 2008Q3

REPORT INFORMATION
  Report Type: 
  Country: None (occurrence: None)
  Receive Date: 20080729
  Receipt Date: 20080716
  Transmission Date: 20090109
  Serious: Yes (Other)
  Sender: FDA-Public Use
  Company Number: TCI2007A05352

PATIENT
  Age: 72 Year
  Sex: Female

DRUGS (2)
  1. LANSOPRAZOLE [Suspect]
     Route: 048
  2. WARFARIN SODIUM [Suspect]
     Dosage: 3 MG (3 MG, 1 D)
     Route: 048

REACTIONS (6)
  - CARDIAC TAMPONADE [None]
  - HAEMORRHAGE [None]
  - HYPOTENSION [None]
  - INTERNATIONAL NORMALISED RATIO INCREASED [None]
  - MALAISE [None]
  - POTENTIATING DRUG INTERACTION [None]
